FAERS Safety Report 21269785 (Version 3)
Quarter: 2022Q4

REPORT INFORMATION
  Report Type: Spontaneous
  Country: JP (occurrence: JP)
  Receive Date: 20220830
  Receipt Date: 20221005
  Transmission Date: 20230113
  Serious: Yes (Hospitalization, Other)
  Sender: FDA-Public Use
  Company Number: JP-SA-2022SA354305

PATIENT
  Age: 79 Year
  Sex: Female
  Weight: 47 kg

DRUGS (10)
  1. KEVZARA [Interacting]
     Active Substance: SARILUMAB
     Indication: Rheumatoid arthritis
     Dosage: 200 MG, QOW
     Route: 058
     Dates: start: 20220201, end: 20220731
  2. METHOTREXATE [Interacting]
     Active Substance: METHOTREXATE
     Indication: Rheumatoid arthritis
     Dosage: 6 MG, QW
     Route: 048
     Dates: end: 20220728
  3. FOLIC ACID [Concomitant]
     Active Substance: FOLIC ACID
     Indication: Product used for unknown indication
     Dosage: 5 MG, QW
     Route: 048
     Dates: end: 20220730
  4. TERIPARATIDE ACETATE [Concomitant]
     Active Substance: TERIPARATIDE ACETATE
     Indication: Osteoporosis
     Dosage: 28.2 UG, BIW
     Route: 058
     Dates: start: 20210429
  5. ELDECALCITOL [Concomitant]
     Active Substance: ELDECALCITOL
     Indication: Osteoporosis
     Dosage: 0.75 UG, QD
     Route: 048
     Dates: start: 20210429
  6. THEO-DUR [Concomitant]
     Active Substance: THEOPHYLLINE ANHYDROUS
     Indication: Lung neoplasm malignant
     Dosage: 100 MG, TID
     Route: 048
  7. THEO-DUR [Concomitant]
     Active Substance: THEOPHYLLINE ANHYDROUS
     Indication: Bronchitis
  8. AMLODIPINE BESYLATE [Concomitant]
     Active Substance: AMLODIPINE BESYLATE
     Indication: Hypertension
     Dosage: 5 G, QD
     Route: 048
  9. TELMISARTAN [Concomitant]
     Active Substance: TELMISARTAN
     Indication: Hypertension
     Dosage: 40 MG, QD
     Route: 048
  10. AMBROXOL HYDROCHLORIDE [Concomitant]
     Active Substance: AMBROXOL HYDROCHLORIDE
     Indication: Bronchitis
     Dosage: 45 G, QD
     Route: 048

REACTIONS (6)
  - Pancytopenia [Recovering/Resolving]
  - Feeling abnormal [Recovering/Resolving]
  - Anaemia [Recovering/Resolving]
  - Decreased appetite [Recovering/Resolving]
  - Malaise [Recovering/Resolving]
  - Drug interaction [Unknown]

NARRATIVE: CASE EVENT DATE: 20220801
